FAERS Safety Report 12689564 (Version 1)
Quarter: 2016Q3

REPORT INFORMATION
  Report Type: Spontaneous
  Country: SE (occurrence: SE)
  Receive Date: 20160826
  Receipt Date: 20160826
  Transmission Date: 20161109
  Serious: Yes (Other)
  Sender: FDA-Public Use
  Company Number: SE-IPSEN BIOPHARMACEUTICALS, INC.-2016-05848

PATIENT
  Age: 68 Year
  Sex: Female

DRUGS (8)
  1. FELODIPINE. [Concomitant]
     Active Substance: FELODIPINE
  2. DYSPORT [Suspect]
     Active Substance: ABOBOTULINUMTOXINA
     Indication: MUSCLE SPASTICITY
     Dosage: NOT REPORTED
     Route: 065
     Dates: start: 201509, end: 201509
  3. DYSPORT [Suspect]
     Active Substance: ABOBOTULINUMTOXINA
     Indication: PAIN
     Dosage: 1000 UNITS
     Route: 030
     Dates: start: 20160517, end: 20160517
  4. BACLOFEN. [Concomitant]
     Active Substance: BACLOFEN
  5. DYSPORT [Suspect]
     Active Substance: ABOBOTULINUMTOXINA
     Indication: PRODUCT USE ISSUE
  6. LACTULOSE. [Concomitant]
     Active Substance: LACTULOSE
  7. SALURES [Concomitant]
     Active Substance: BENDROFLUMETHIAZIDE
  8. ENALAPRIL [Concomitant]
     Active Substance: ENALAPRIL

REACTIONS (5)
  - Hypoaesthesia [Recovered/Resolved]
  - Pain in extremity [Recovered/Resolved]
  - Drug ineffective [Unknown]
  - Neuromuscular toxicity [Not Recovered/Not Resolved]
  - Musculoskeletal stiffness [Recovered/Resolved]

NARRATIVE: CASE EVENT DATE: 20160518
